FAERS Safety Report 17419614 (Version 1)
Quarter: 2020Q1

REPORT INFORMATION
  Report Type: Spontaneous
  Country: IT (occurrence: IT)
  Receive Date: 20200214
  Receipt Date: 20200214
  Transmission Date: 20200409
  Serious: Yes (Other)
  Sender: FDA-Public Use
  Company Number: IT-SUN PHARMACEUTICAL INDUSTRIES LTD-2020RR-236949

PATIENT
  Age: 58 Year
  Sex: Male

DRUGS (4)
  1. GEMCITABINE. [Suspect]
     Active Substance: GEMCITABINE
     Indication: MALIGNANT NEOPLASM PROGRESSION
     Dosage: D1,8 Q21, 2 CYCLES
     Route: 042
  2. PEMETREXED. [Suspect]
     Active Substance: PEMETREXED
     Indication: LUNG ADENOCARCINOMA
     Dosage: D1 Q21, 2 CYCLES
     Route: 042
     Dates: start: 201502, end: 201503
  3. CISPLATIN. [Suspect]
     Active Substance: CISPLATIN
     Indication: LUNG ADENOCARCINOMA
     Dosage: D1 Q21, 2 CYCLES
     Route: 042
     Dates: start: 201502, end: 201503
  4. DOCETAXEL. [Suspect]
     Active Substance: DOCETAXEL
     Indication: MALIGNANT NEOPLASM PROGRESSION
     Dosage: D1 Q21
     Route: 042

REACTIONS (3)
  - Rash [Unknown]
  - Hypotension [Unknown]
  - Malignant neoplasm progression [Recovering/Resolving]
